FAERS Safety Report 21568606 (Version 9)
Quarter: 2023Q1

REPORT INFORMATION
  Report Type: Report from Study
  Country: CA (occurrence: CA)
  Receive Date: 20221108
  Receipt Date: 20230313
  Transmission Date: 20230418
  Serious: Yes (Hospitalization, Other)
  Sender: FDA-Public Use
  Company Number: CA-GILEAD-2022-0602951

PATIENT
  Sex: Female
  Weight: 52 kg

DRUGS (16)
  1. SACITUZUMAB GOVITECAN-HZIY [Suspect]
     Active Substance: SACITUZUMAB GOVITECAN-HZIY
     Indication: Triple negative breast cancer
     Dosage: 540 MG, UNSPECIFIED CYCLE
     Route: 042
     Dates: start: 20221018, end: 20221025
  2. SACITUZUMAB GOVITECAN-HZIY [Suspect]
     Active Substance: SACITUZUMAB GOVITECAN-HZIY
     Dosage: 500 MG, UNSPECIFIED CYCLE
     Route: 042
     Dates: start: 20220104, end: 20221025
  3. SACITUZUMAB GOVITECAN-HZIY [Suspect]
     Active Substance: SACITUZUMAB GOVITECAN-HZIY
     Dosage: 500 MG
     Route: 042
     Dates: start: 20230104, end: 20230111
  4. SACITUZUMAB GOVITECAN-HZIY [Suspect]
     Active Substance: SACITUZUMAB GOVITECAN-HZIY
     Dosage: 500 MG
     Route: 042
     Dates: start: 20230215
  5. SACITUZUMAB GOVITECAN-HZIY [Suspect]
     Active Substance: SACITUZUMAB GOVITECAN-HZIY
     Dosage: 500 MG
     Route: 042
  6. VANCOMYCIN [Suspect]
     Active Substance: VANCOMYCIN
     Indication: Antibiotic therapy
     Route: 065
  7. PREGABALIN [Concomitant]
     Active Substance: PREGABALIN
     Dosage: 50 MG
     Route: 048
  8. TYLENOL 8HR [Concomitant]
     Active Substance: ACETAMINOPHEN
     Dosage: 500 MG
     Route: 048
  9. ACETAMINOPHEN [Concomitant]
     Active Substance: ACETAMINOPHEN
     Dosage: 650 MG
     Route: 048
  10. ACETAMINOPHEN [Concomitant]
     Active Substance: ACETAMINOPHEN
     Dosage: 650 MG PO (PRE-MEDICATION PRIOR TO TRODELVY)
  11. ACETAMINOPHEN [Concomitant]
     Active Substance: ACETAMINOPHEN
     Dosage: 650 MG PO (PRE-MEDICATION PRIOR TO TRODELVY)
  12. DIPHENHYDRAMINE [Concomitant]
     Active Substance: DIPHENHYDRAMINE
     Dosage: 50 MG
     Route: 048
  13. DIPHENHYDRAMINE [Concomitant]
     Active Substance: DIPHENHYDRAMINE
     Dosage: 50 MG PO (PRE-MEDICATION PRIOR TO TRODELVY)
  14. DIPHENHYDRAMINE [Concomitant]
     Active Substance: DIPHENHYDRAMINE
     Dosage: 50 MG PO (PRE-MEDICATION PRIOR TO TRODELVY)
  15. FAMOTIDINE [Concomitant]
     Active Substance: FAMOTIDINE
     Dosage: 40 MG
     Route: 048
  16. TAXOL [Concomitant]
     Active Substance: PACLITAXEL

REACTIONS (22)
  - Erythema multiforme [Recovering/Resolving]
  - Stevens-Johnson syndrome [Recovering/Resolving]
  - Pyrexia [Recovered/Resolved]
  - Neutrophil count increased [Unknown]
  - Pyrexia [Recovered/Resolved]
  - Chest pain [Not Recovered/Not Resolved]
  - Febrile neutropenia [Recovering/Resolving]
  - Skin disorder [Recovering/Resolving]
  - Vascular device infection [Recovering/Resolving]
  - Weight fluctuation [Unknown]
  - Weight fluctuation [Not Recovered/Not Resolved]
  - Hypoaesthesia [Unknown]
  - White blood cell count increased [Unknown]
  - Malaise [Unknown]
  - Alopecia [Unknown]
  - Nausea [Recovered/Resolved]
  - Dysgeusia [Unknown]
  - Staphylococcal infection [Recovering/Resolving]
  - Malaise [Unknown]
  - Hypotension [Recovering/Resolving]
  - Inappropriate schedule of product administration [Unknown]
  - Off label use [Unknown]

NARRATIVE: CASE EVENT DATE: 20230101
